FAERS Safety Report 19980598 (Version 2)
Quarter: 2022Q4

REPORT INFORMATION
  Report Type: Spontaneous
  Country: FR (occurrence: FR)
  Receive Date: 20211022
  Receipt Date: 20221031
  Transmission Date: 20230113
  Serious: Yes (Hospitalization)
  Sender: FDA-Public Use
  Company Number: FR-AFSSAPS-NY20214559

PATIENT
  Age: 36 Year
  Sex: Female
  Weight: 97.9 kg

DRUGS (4)
  1. KETOPROFEN [Suspect]
     Active Substance: KETOPROFEN
     Indication: Pain
     Dosage: 1-2 TABLETS/D FOR 2-3 DAYS/WEEK UNTIL 09/17
     Route: 048
     Dates: start: 20210709, end: 20210917
  2. OMEPRAZOLE [Suspect]
     Active Substance: OMEPRAZOLE
     Indication: Prophylaxis against gastrointestinal ulcer
     Dosage: 1-2 CP/J PENDANT 2-3 JOURS/SEMAINE JUSQU^AU 17/09
     Route: 048
     Dates: start: 20210709, end: 20210917
  3. ACETAMINOPHEN\CODEINE PHOSPHATE [Suspect]
     Active Substance: ACETAMINOPHEN\CODEINE PHOSPHATE
     Indication: Pain
     Dosage: 6 DOSAGE FORM, DAILY, 2-2-2
     Route: 048
     Dates: start: 20210709, end: 20210917
  4. PERINDOPRIL [Concomitant]
     Active Substance: PERINDOPRIL
     Indication: Hypertension
     Dosage: UNK
     Route: 065

REACTIONS (1)
  - Pancreatitis acute [Recovering/Resolving]

NARRATIVE: CASE EVENT DATE: 20210927
